FAERS Safety Report 9366482 (Version 3)
Quarter: 2013Q3

REPORT INFORMATION
  Report Type: Spontaneous
  Country: AU (occurrence: AU)
  Receive Date: 20130625
  Receipt Date: 20130718
  Transmission Date: 20140515
  Serious: Yes (Death)
  Sender: FDA-Public Use
  Company Number: AU-MERCK-1306AUS011078

PATIENT
  Age: 63 Year
  Sex: Male

DRUGS (1)
  1. ZOLINZA [Suspect]
     Indication: NON-HODGKIN^S LYMPHOMA
     Route: 048

REACTIONS (3)
  - Post transplant lymphoproliferative disorder [Fatal]
  - Stem cell transplant [Unknown]
  - Acute graft versus host disease [Not Recovered/Not Resolved]
